FAERS Safety Report 5024113-9 (Version None)
Quarter: 2006Q2

REPORT INFORMATION
  Report Type: 
  Country: None (occurrence: None)
  Receive Date: 20060607
  Receipt Date: 20060525
  Transmission Date: 20061013
  Serious: Yes (Hospitalization)
  Sender: FDA-Public Use
  Company Number: 200613685BWH

PATIENT
  Age: 47 Year
  Sex: Male

DRUGS (2)
  1. SORAFENIB [Suspect]
     Indication: RENAL CELL CARCINOMA STAGE UNSPECIFIED
     Dosage: 400 MG, BID, ORAL
     Route: 048
     Dates: start: 20050328, end: 20060508
  2. INTERFERON ALPHA-2B (INTERFERON ALFA-2B) [Suspect]
     Indication: RENAL CELL CARCINOMA STAGE UNSPECIFIED
     Dosage: 10.0 X 10 (6) IU, TIW, SUBCUTANEOUS
     Route: 058

REACTIONS (1)
  - APPENDICITIS PERFORATED [None]
